FAERS Safety Report 10285396 (Version 2)
Quarter: 2014Q3

REPORT INFORMATION
  Report Type: Report from Study
  Country: US (occurrence: US)
  Receive Date: 20140708
  Receipt Date: 20140721
  Transmission Date: 20150326
  Serious: Yes (Death)
  Sender: FDA-Public Use
  Company Number: US-ACTELION-A-US2014-101278

PATIENT
  Age: 71 Year
  Sex: Male

DRUGS (9)
  1. NIFEDICAL [Concomitant]
  2. COREG [Concomitant]
     Active Substance: CARVEDILOL
  3. POTASSIUM [Concomitant]
     Active Substance: POTASSIUM
  4. NAPROXEN. [Concomitant]
     Active Substance: NAPROXEN
  5. MACITENTAN [Suspect]
     Active Substance: MACITENTAN
     Indication: PULMONARY ARTERIAL HYPERTENSION
     Dosage: 10 MG, QD
     Route: 048
     Dates: start: 20140212, end: 20140625
  6. VENTAVIS [Concomitant]
     Active Substance: ILOPROST
     Indication: PULMONARY ARTERIAL HYPERTENSION
  7. RIOCIGUAT [Concomitant]
     Active Substance: RIOCIGUAT
  8. FUROSEMIDE. [Concomitant]
     Active Substance: FUROSEMIDE
  9. ASPIRIN. [Concomitant]
     Active Substance: ASPIRIN

REACTIONS (3)
  - Disease progression [Fatal]
  - Pulmonary arterial hypertension [Fatal]
  - Cardiac failure congestive [Fatal]

NARRATIVE: CASE EVENT DATE: 20140625
